FAERS Safety Report 25350259 (Version 4)
Quarter: 2025Q3

REPORT INFORMATION
  Report Type: Spontaneous
  Country: US (occurrence: US)
  Receive Date: 20250523
  Receipt Date: 20250715
  Transmission Date: 20251020
  Serious: Yes (Other)
  Sender: UNITED THERAPEUTICS
  Company Number: US-UNITED THERAPEUTICS-UNT-2025-017341

PATIENT
  Sex: Male
  Weight: 67.12 kg

DRUGS (20)
  1. TYVASO DPI [Suspect]
     Active Substance: TREPROSTINIL
     Indication: Pulmonary arterial hypertension
     Dosage: 32 ?G, QID
     Dates: start: 2025, end: 2025
  2. TYVASO DPI [Suspect]
     Active Substance: TREPROSTINIL
     Dosage: 48 ?G, QID
     Dates: start: 2025, end: 2025
  3. TYVASO DPI [Suspect]
     Active Substance: TREPROSTINIL
     Dosage: 64 ?G, QID
     Dates: start: 2025
  4. TYVASO DPI [Suspect]
     Active Substance: TREPROSTINIL
  5. TYVASO DPI [Suspect]
     Active Substance: TREPROSTINIL
     Indication: Pulmonary arterial hypertension
  6. TYVASO DPI [Suspect]
     Active Substance: TREPROSTINIL
     Indication: Pulmonary arterial hypertension
  7. TYVASO DPI [Suspect]
     Active Substance: TREPROSTINIL
     Indication: Pulmonary arterial hypertension
  8. OXYGEN [Suspect]
     Active Substance: OXYGEN
     Indication: Product used for unknown indication
  9. OXYGEN [Suspect]
     Active Substance: OXYGEN
  10. BREZTRI [Suspect]
     Active Substance: BUDESONIDE\FORMOTEROL\GLYCOPYRROLATE
     Indication: Product used for unknown indication
  11. FLONASE ALLERGY RELIEF [Suspect]
     Active Substance: FLUTICASONE PROPIONATE
     Indication: Product used for unknown indication
  12. AZELASTINE HYDROCHLORIDE [Suspect]
     Active Substance: AZELASTINE HYDROCHLORIDE
     Indication: Product used for unknown indication
  13. ATORVASTATIN CALCIUM [Concomitant]
     Active Substance: ATORVASTATIN CALCIUM
     Indication: Product used for unknown indication
  14. JARDIANCE [Concomitant]
     Active Substance: EMPAGLIFLOZIN
     Indication: Product used for unknown indication
  15. PROCRIT [Concomitant]
     Active Substance: ERYTHROPOIETIN
     Indication: Product used for unknown indication
  16. EPLERENONE [Concomitant]
     Active Substance: EPLERENONE
     Indication: Product used for unknown indication
  17. ASPIRIN [Concomitant]
     Active Substance: ASPIRIN
     Indication: Product used for unknown indication
  18. LEVOTHYROXINE SODIUM [Concomitant]
     Active Substance: LEVOTHYROXINE SODIUM
     Indication: Product used for unknown indication
  19. FUROSEMIDE [Concomitant]
     Active Substance: FUROSEMIDE
     Indication: Product used for unknown indication
  20. BISOPROLOL FUMARATE [Concomitant]
     Active Substance: BISOPROLOL FUMARATE
     Indication: Product used for unknown indication

REACTIONS (8)
  - Pneumonia [Unknown]
  - Bronchitis [Unknown]
  - Infection [Unknown]
  - Cough [Unknown]
  - Feeling jittery [Unknown]
  - Erythema [Unknown]
  - Epistaxis [Unknown]
  - Nasal crusting [Recovering/Resolving]

NARRATIVE: CASE EVENT DATE: 20250101
